FAERS Safety Report 4816734-0 (Version None)
Quarter: 2005Q4

REPORT INFORMATION
  Report Type: 
  Country: None (occurrence: None)
  Receive Date: 20051028
  Receipt Date: 20051011
  Transmission Date: 20060501
  Serious: Yes (Disabling)
  Sender: FDA-Public Use
  Company Number: 200500111

PATIENT
  Age: 53 Year
  Sex: Male

DRUGS (27)
  1. BOTOX [Suspect]
     Indication: TORTICOLLIS
     Dates: start: 19950101
  2. BOTOX [Suspect]
     Indication: TORTICOLLIS
     Dates: start: 20030101
  3. BOTOX [Suspect]
     Indication: TORTICOLLIS
     Dates: start: 20040101
  4. BOTOX [Suspect]
     Indication: TORTICOLLIS
     Dosage: UNITS
     Dates: start: 20031110, end: 20041102
  5. NEURONTIN [Concomitant]
  6. UNSPECIFIED SKIN LOTION [Concomitant]
  7. PROTONIX [Concomitant]
  8. TERAZOSIN [Concomitant]
  9. PROSCAR [Concomitant]
  10. FLOMAX [Concomitant]
  11. KENTOCONAZOLE [Concomitant]
  12. LUXIQ [Concomitant]
  13. HYDROCODONE/ACETAMINOPHIN [Concomitant]
  14. PREDNISONE [Concomitant]
  15. ZITHROMAX [Concomitant]
  16. AMOXICILLIN [Concomitant]
  17. OXYCODONE/ACETAMINOPHIN [Concomitant]
  18. HALDOL [Concomitant]
  19. VALIUM [Concomitant]
  20. BENADRYL [Concomitant]
  21. XANAX [Concomitant]
  22. FLEXERIL [Concomitant]
  23. ARTANE [Concomitant]
  24. DARVON [Concomitant]
  25. VOLTAREN [Concomitant]
  26. AMITRIPTYLINE HCL [Concomitant]
  27. DARVOCET-N 100 [Concomitant]

REACTIONS (30)
  - ACTIVITIES OF DAILY LIVING IMPAIRED [None]
  - ASTHENIA [None]
  - BENIGN PROSTATIC HYPERPLASIA [None]
  - BURNING SENSATION [None]
  - CONDITION AGGRAVATED [None]
  - CONFUSIONAL STATE [None]
  - DISORIENTATION [None]
  - DISTURBANCE IN ATTENTION [None]
  - DRUG INEFFECTIVE [None]
  - DRUG TOLERANCE [None]
  - DYSPHAGIA [None]
  - EMOTIONAL DISORDER [None]
  - FORMICATION [None]
  - GUILLAIN-BARRE SYNDROME [None]
  - HYPERHIDROSIS [None]
  - HYPOAESTHESIA [None]
  - IMPAIRED DRIVING ABILITY [None]
  - IMPAIRED WORK ABILITY [None]
  - INFLUENZA [None]
  - INJURY [None]
  - MUSCULAR WEAKNESS [None]
  - NEUROLOGICAL EXAMINATION ABNORMAL [None]
  - PAIN [None]
  - PAIN IN EXTREMITY [None]
  - PARAESTHESIA [None]
  - PARANOIA [None]
  - SOMNOLENCE [None]
  - TORTICOLLIS [None]
  - TREMOR [None]
  - VIRAL INFECTION [None]
